FAERS Safety Report 22370112 (Version 1)
Quarter: 2023Q2

REPORT INFORMATION
  Report Type: Spontaneous
  Country: US (occurrence: US)
  Receive Date: 20230526
  Receipt Date: 20230526
  Transmission Date: 20230722
  Serious: Yes (Other)
  Sender: FDA-Public Use
  Company Number: US-PADAGIS-2023PAD00734

PATIENT

DRUGS (3)
  1. MUPIROCIN [Suspect]
     Active Substance: MUPIROCIN
     Indication: Fungal infection
     Dosage: UNK, BID
     Route: 061
     Dates: start: 20230417, end: 20230426
  2. PREVACID [Suspect]
     Active Substance: LANSOPRAZOLE
     Indication: Diverticulum
     Dosage: UNK
     Route: 065
  3. NYSTATIN [Concomitant]
     Active Substance: NYSTATIN
     Indication: Fungal infection
     Dosage: UNK
     Route: 065

REACTIONS (4)
  - Erectile dysfunction [Not Recovered/Not Resolved]
  - Diverticulum [Unknown]
  - Accidental exposure to product [Unknown]
  - Off label use [Unknown]

NARRATIVE: CASE EVENT DATE: 20230417
